FAERS Safety Report 25582063 (Version 1)
Quarter: 2025Q3

REPORT INFORMATION
  Report Type: Spontaneous
  Country: US (occurrence: US)
  Receive Date: 20250719
  Receipt Date: 20250719
  Transmission Date: 20251020
  Serious: No
  Sender: MERCK SHARP & DOHME LLC
  Company Number: US-009507513-2309004

PATIENT
  Sex: Male

DRUGS (7)
  1. SITAGLIPTIN PHOSPHATE [Suspect]
     Active Substance: SITAGLIPTIN PHOSPHATE
     Indication: Diabetes mellitus
     Route: 048
  2. JARDIANCE [Concomitant]
     Active Substance: EMPAGLIFLOZIN
  3. CARVEDILOL [Concomitant]
     Active Substance: CARVEDILOL
  4. CLOPIDOGREL [Concomitant]
     Active Substance: CLOPIDOGREL BISULFATE
  5. GLIPIZIDE [Concomitant]
     Active Substance: GLIPIZIDE
  6. ATORVASTATIN [Concomitant]
     Active Substance: ATORVASTATIN
  7. DORZOLAMIDE [Concomitant]
     Active Substance: DORZOLAMIDE

REACTIONS (5)
  - Blood glucose increased [Not Recovered/Not Resolved]
  - Pollakiuria [Not Recovered/Not Resolved]
  - Product dose omission issue [Unknown]
  - Inability to afford medication [Unknown]
  - Feeling abnormal [Not Recovered/Not Resolved]

NARRATIVE: CASE EVENT DATE: 20250101
